FAERS Safety Report 17190265 (Version 2)
Quarter: 2020Q1

REPORT INFORMATION
  Report Type: Report from Study
  Country: US (occurrence: US)
  Receive Date: 20191223
  Receipt Date: 20200110
  Transmission Date: 20200409
  Serious: Yes (Hospitalization)
  Sender: FDA-Public Use
  Company Number: US-SA-2019SA353891

PATIENT
  Age: 74 Year
  Sex: Female

DRUGS (4)
  1. HYDRALAZINE HYDROCHLORIDE. [Concomitant]
     Active Substance: HYDRALAZINE HYDROCHLORIDE
     Indication: HYPERTENSION
     Dosage: 50 MG, BID
  2. DUPILUMAB [Suspect]
     Active Substance: DUPILUMAB
     Dosage: UNK, TWO TIMES A MONTH
     Route: 058
  3. DUPILUMAB [Suspect]
     Active Substance: DUPILUMAB
     Indication: ASTHMA
     Dosage: 2 DF
     Route: 058
     Dates: start: 201911
  4. DILTIAZEM. [Concomitant]
     Active Substance: DILTIAZEM
     Indication: HYPERTENSION
     Dosage: UNK

REACTIONS (4)
  - Product dose omission [Unknown]
  - Bronchitis [Recovered/Resolved]
  - Viral infection [Unknown]
  - Asthma [Unknown]

NARRATIVE: CASE EVENT DATE: 201912
